FAERS Safety Report 20564496 (Version 1)
Quarter: 2022Q1

REPORT INFORMATION
  Report Type: Spontaneous
  Country: CN (occurrence: CN)
  Receive Date: 20220308
  Receipt Date: 20220308
  Transmission Date: 20220424
  Serious: Yes (Hospitalization)
  Sender: FDA-Public Use
  Company Number: CN-BoehringerIngelheim-2022-BI-156132

PATIENT
  Age: 96 Year
  Sex: Female
  Weight: 80 kg

DRUGS (1)
  1. ALTEPLASE [Suspect]
     Active Substance: ALTEPLASE
     Indication: Cerebral infarction
     Route: 042
     Dates: start: 20220120, end: 20220120

REACTIONS (8)
  - Mouth haemorrhage [Recovering/Resolving]
  - Blood fibrinogen decreased [Recovering/Resolving]
  - Haemorrhage subcutaneous [Recovering/Resolving]
  - Haematoma [Recovering/Resolving]
  - Facial pain [Recovering/Resolving]
  - Swelling face [Recovering/Resolving]
  - Gingival bleeding [Recovering/Resolving]
  - Off label use [Unknown]

NARRATIVE: CASE EVENT DATE: 20220120
